FAERS Safety Report 17969969 (Version 3)
Quarter: 2021Q1

REPORT INFORMATION
  Report Type: Report from Study
  Country: DE (occurrence: DE)
  Receive Date: 20200701
  Receipt Date: 20210225
  Transmission Date: 20210419
  Serious: Yes (Hospitalization, Other)
  Sender: FDA-Public Use
  Company Number: DE-NAPPMUNDI-USA-2019-0147682

PATIENT
  Age: 42 Year
  Sex: Male
  Weight: 105 kg

DRUGS (15)
  1. NIVOLUMAB [Suspect]
     Active Substance: NIVOLUMAB
     Indication: MALIGNANT MELANOMA
     Dosage: 1 MG/KG, EVERY 3 WEEKS
     Route: 041
     Dates: start: 20191210, end: 20200128
  2. PIPERACILLIN. [Concomitant]
     Active Substance: PIPERACILLIN SODIUM
     Indication: PNEUMONITIS
     Dosage: 4 G, TID
     Route: 042
     Dates: start: 20190830, end: 20190904
  3. OXYCODONE HYDROCHLORIDE. [Suspect]
     Active Substance: OXYCODONE HYDROCHLORIDE
     Indication: SCAR PAIN
     Dosage: 10 MG, BID
     Route: 048
     Dates: start: 20190601
  4. ZOLPIDEM HEMITARTRATE [Concomitant]
     Active Substance: ZOLPIDEM TARTRATE
     Indication: SLEEP DISORDER
     Dosage: 10 MG, DAILY
     Route: 048
     Dates: start: 20191007
  5. METHYLPREDNISOLONE. [Concomitant]
     Active Substance: METHYLPREDNISOLONE
     Dosage: 10 MG, DAILY
     Route: 048
     Dates: start: 20190917, end: 20190920
  6. OXYCODONE HYDROCHLORIDE (SIMILAR TO NDA 22?272) [Suspect]
     Active Substance: OXYCODONE HYDROCHLORIDE
     Indication: SCAR PAIN
     Dosage: 20 MG, DAILY
     Route: 048
     Dates: start: 20190601
  7. METHYLPREDNISOLONE. [Concomitant]
     Active Substance: METHYLPREDNISOLONE
     Indication: PNEUMONITIS
     Dosage: 20 MG, DAILY
     Route: 048
     Dates: start: 20190914, end: 20190916
  8. METHYLPREDNISOLONE. [Concomitant]
     Active Substance: METHYLPREDNISOLONE
     Indication: HEPATITIS
     Dosage: 30 MG, DAILY
     Route: 048
     Dates: start: 20190911, end: 20190913
  9. METHYLPREDNISOLONE. [Concomitant]
     Active Substance: METHYLPREDNISOLONE
     Dosage: 100 MG, DAILY
     Route: 048
     Dates: start: 20190831, end: 20190906
  10. VEMURAFENIB. [Suspect]
     Active Substance: VEMURAFENIB
     Indication: MALIGNANT MELANOMA
     Dosage: 240 MG, 0.12 DAY (SUBSEQUENT DOSE RECEIVED ON 23/SEP/2019)
     Route: 048
     Dates: start: 20190521, end: 20190828
  11. IPILIMUMAB [Suspect]
     Active Substance: IPILIMUMAB
     Indication: MALIGNANT MELANOMA
     Dosage: 3 MG/KG, EVERY 3 WEEKS
     Route: 041
     Dates: start: 20191210, end: 20200128
  12. TAZOBACTAM [Concomitant]
     Active Substance: TAZOBACTAM
     Indication: PNEUMONITIS
     Dosage: 0.5 G, TID
     Route: 042
     Dates: start: 20190830, end: 20190904
  13. METHYLPREDNISOLONE. [Concomitant]
     Active Substance: METHYLPREDNISOLONE
     Dosage: 50 MG, DAILY
     Route: 048
     Dates: start: 20190907, end: 20190910
  14. VEMURAFENIB. [Suspect]
     Active Substance: VEMURAFENIB
     Indication: MALIGNANT MELANOMA
     Dosage: 240 MG, 0.12 D
     Route: 048
     Dates: start: 20190923, end: 20191210
  15. COBIMETINIB. [Suspect]
     Active Substance: COBIMETINIB
     Indication: MALIGNANT MELANOMA
     Dosage: 20 MG, TID
     Route: 048
     Dates: start: 20190521, end: 20190810

REACTIONS (6)
  - Speech disorder [Recovered/Resolved]
  - Immune-mediated hepatitis [Recovered/Resolved]
  - Scar pain [Not Recovered/Not Resolved]
  - Lymphadenopathy [Recovered/Resolved]
  - Immune-mediated hepatitis [Recovered/Resolved]
  - Cough [Not Recovered/Not Resolved]

NARRATIVE: CASE EVENT DATE: 20190523
